FAERS Safety Report 5921314-X (Version None)
Quarter: 2008Q4

REPORT INFORMATION
  Report Type: 
  Country: None (occurrence: None)
  Receive Date: 20081016
  Receipt Date: 20081013
  Transmission Date: 20090506
  Serious: Yes (Hospitalization)
  Sender: FDA-Public Use
  Company Number: RU-MERCK-0810RUS00003

PATIENT
  Age: 52 Year
  Sex: Male

DRUGS (5)
  1. FOSAMAX PLUS D [Suspect]
     Indication: OSTEOPOROSIS
     Route: 048
     Dates: end: 20081001
  2. FOSAMAX PLUS D [Suspect]
     Indication: HYPOGONADISM
     Route: 048
     Dates: end: 20081001
  3. METFORMIN HYDROCHLORIDE [Concomitant]
     Indication: DIABETES MELLITUS
     Route: 048
  4. TELMISARTAN [Concomitant]
     Indication: MYOCARDIAL ISCHAEMIA
     Route: 048
  5. SIMVASTATIN [Concomitant]
     Indication: MYOCARDIAL ISCHAEMIA
     Route: 048

REACTIONS (3)
  - ABDOMINAL PAIN UPPER [None]
  - ASTHENIA [None]
  - MELAENA [None]
